FAERS Safety Report 19882972 (Version 1)
Quarter: 2021Q3

REPORT INFORMATION
  Report Type: Spontaneous
  Country: US (occurrence: US)
  Receive Date: 20210925
  Receipt Date: 20210925
  Transmission Date: 20211014
  Serious: No
  Sender: FDA-Public Use
  Company Number: US-SA-2021SA310183

PATIENT
  Sex: Female

DRUGS (2)
  1. DUPIXENT [Suspect]
     Active Substance: DUPILUMAB
     Indication: PRURITUS
  2. DUPIXENT [Suspect]
     Active Substance: DUPILUMAB
     Indication: TENDERNESS

REACTIONS (2)
  - Product use in unapproved indication [Unknown]
  - Insomnia [Unknown]
